FAERS Safety Report 7145086-9 (Version None)
Quarter: 2010Q4

REPORT INFORMATION
  Report Type: 
  Country: None (occurrence: None)
  Receive Date: 20101208
  Receipt Date: 20101202
  Transmission Date: 20110411
  Serious: Yes (Death, Other)
  Sender: FDA-Public Use
  Company Number: PHHY2010JP68704

PATIENT
  Sex: Male
  Weight: 52 kg

DRUGS (1)
  1. ZOMETA [Suspect]
     Indication: LARGE INTESTINE CARCINOMA
     Dosage: UNK
     Route: 041
     Dates: start: 20060501, end: 20070323

REACTIONS (7)
  - ADENOCARCINOMA [None]
  - BONE DISORDER [None]
  - IMPAIRED HEALING [None]
  - METASTASES TO MOUTH [None]
  - OSTEONECROSIS OF JAW [None]
  - PERIODONTITIS [None]
  - TOOTH EXTRACTION [None]
